FAERS Safety Report 12993635 (Version 1)
Quarter: 2016Q4

REPORT INFORMATION
  Report Type: Spontaneous
  Country: US (occurrence: US)
  Receive Date: 20161201
  Receipt Date: 20161201
  Transmission Date: 20170207
  Serious: Yes (Hospitalization)
  Sender: FDA-Public Use
  Company Number: None

PATIENT
  Age: 67 Year
  Sex: Male
  Weight: 108.9 kg

DRUGS (1)
  1. ATORVASTATIN [Suspect]
     Active Substance: ATORVASTATIN
     Indication: HYPERLIPIDAEMIA
     Route: 048
     Dates: start: 20160422, end: 20160524

REACTIONS (5)
  - Lethargy [None]
  - Fall [None]
  - Incontinence [None]
  - Hepatic enzyme increased [None]
  - Depressed level of consciousness [None]

NARRATIVE: CASE EVENT DATE: 20160524
